FAERS Safety Report 7450424-3 (Version None)
Quarter: 2011Q2

REPORT INFORMATION
  Report Type: 
  Country: None (occurrence: None)
  Receive Date: 20110429
  Receipt Date: 20110429
  Transmission Date: 20111010
  Serious: Yes (Life-Threatening, Hospitalization)
  Sender: FDA-Public Use
  Company Number: None

PATIENT
  Age: 77 Year
  Sex: Female
  Weight: 58.0604 kg

DRUGS (1)
  1. PRADAXA [Suspect]
     Indication: ATRIAL FIBRILLATION
     Dosage: ONE CAPSULE DAILY PO
     Route: 048
     Dates: start: 20110403, end: 20110403

REACTIONS (6)
  - THROAT TIGHTNESS [None]
  - EYE SWELLING [None]
  - EYE PRURITUS [None]
  - CHEST DISCOMFORT [None]
  - SWELLING FACE [None]
  - OCULAR HYPERAEMIA [None]
